FAERS Safety Report 24000620 (Version 1)
Quarter: 2024Q2

REPORT INFORMATION
  Report Type: Spontaneous
  Country: US (occurrence: None)
  Receive Date: 20240621
  Receipt Date: 20240621
  Transmission Date: 20240716
  Serious: Yes (Other)
  Sender: FDA-Public Use
  Company Number: None

PATIENT
  Age: 54 Year
  Sex: Male
  Weight: 94.4 kg

DRUGS (2)
  1. VOCABRIA [Suspect]
     Active Substance: CABOTEGRAVIR SODIUM
     Indication: HIV infection
     Dosage: 30 MG DAILY ORAL ?
     Route: 048
     Dates: start: 20240618, end: 20240618
  2. EDURANT [Suspect]
     Active Substance: RILPIVIRINE HYDROCHLORIDE
     Indication: HIV infection
     Dosage: 25 MG DAILY ORAL
     Route: 048
     Dates: start: 20240618, end: 20240618

REACTIONS (2)
  - Angioedema [None]
  - Drug hypersensitivity [None]

NARRATIVE: CASE EVENT DATE: 20240618
